FAERS Safety Report 12204511 (Version 1)
Quarter: 2016Q1

REPORT INFORMATION
  Report Type: Spontaneous
  Country: IT (occurrence: IT)
  Receive Date: 20160323
  Receipt Date: 20160323
  Transmission Date: 20160526
  Serious: Yes (Other)
  Sender: FDA-Public Use
  Company Number: IT-AMGEN-ITASP2016035620

PATIENT
  Age: 75 Year
  Sex: Female
  Weight: 50 kg

DRUGS (6)
  1. DIDROGYL [Concomitant]
     Active Substance: CALCIFEDIOL
     Dosage: 1.5 MG/10 ML, UNK
     Route: 048
  2. PROLIA [Suspect]
     Active Substance: DENOSUMAB
     Indication: OSTEOPOROSIS
     Dosage: 60 MG/ML, CYCLICAL
     Route: 058
     Dates: start: 20140730
  3. FOSICOMBI [Concomitant]
     Active Substance: FOSINOPRIL SODIUM\HYDROCHLOROTHIAZIDE
     Dosage: 20 MG+12.5 MG, UNK
  4. SINVACOR [Concomitant]
     Active Substance: SIMVASTATIN
     Dosage: 10 MG, UNK
  5. EUTIROX [Concomitant]
     Active Substance: LEVOTHYROXINE SODIUM
     Dosage: 25 MUG, UNK
  6. METOCAL VITAMINA D3 [Concomitant]
     Dosage: 60 UNK, UNK

REACTIONS (2)
  - Cystitis haemorrhagic [Unknown]
  - Epistaxis [Unknown]

NARRATIVE: CASE EVENT DATE: 20150202
